FAERS Safety Report 25841655 (Version 1)
Quarter: 2025Q3

REPORT INFORMATION
  Report Type: Spontaneous
  Country: CA (occurrence: CA)
  Receive Date: 20250924
  Receipt Date: 20250924
  Transmission Date: 20251021
  Serious: Yes (Death, Hospitalization)
  Sender: AMGEN
  Company Number: CA-AMGEN-CANSP2025185544

PATIENT
  Age: 4 Month
  Sex: Male

DRUGS (1)
  1. INFLIXIMAB [Suspect]
     Active Substance: INFLIXIMAB
     Indication: Coronary artery aneurysm
     Route: 065

REACTIONS (4)
  - Aneurysm ruptured [Fatal]
  - Cardiac arrest [Fatal]
  - Pericardial haemorrhage [Unknown]
  - Off label use [Unknown]
